FAERS Safety Report 21357783 (Version 1)
Quarter: 2022Q3

REPORT INFORMATION
  Report Type: Spontaneous
  Country: US (occurrence: US)
  Receive Date: 20220921
  Receipt Date: 20220921
  Transmission Date: 20221027
  Serious: No
  Sender: FDA-Public Use
  Company Number: US-GLAND PHARMA LIMITED-2022US001807

PATIENT
  Age: 44 Year
  Sex: Female
  Weight: 57 kg

DRUGS (2)
  1. PACLITAXEL [Suspect]
     Active Substance: PACLITAXEL
     Indication: Breast cancer
     Dosage: 260 MG, Q3WEEKS
     Route: 042
     Dates: start: 20220318
  2. PACLITAXEL [Suspect]
     Active Substance: PACLITAXEL
     Dosage: 260 MG, Q3WEEKS
     Route: 042
     Dates: start: 20220318, end: 20220318

REACTIONS (2)
  - Throat tightness [Recovered/Resolved]
  - Back pain [Recovered/Resolved]

NARRATIVE: CASE EVENT DATE: 20220318
